FAERS Safety Report 9181619 (Version 3)
Quarter: 2013Q3

REPORT INFORMATION
  Report Type: Report from Study
  Country: US (occurrence: US)
  Receive Date: 20130322
  Receipt Date: 20130704
  Transmission Date: 20140515
  Serious: Yes (Hospitalization)
  Sender: FDA-Public Use
  Company Number: US-ELI_LILLY_AND_COMPANY-US201204008163

PATIENT
  Age: 67 Year
  Sex: Female

DRUGS (8)
  1. TERIPARATIDE [Suspect]
  2. TERIPARATIDE [Suspect]
     Dosage: UNK, QD
     Dates: start: 201201, end: 201301
  3. DUONEB [Concomitant]
  4. SYMBICORT [Concomitant]
  5. OXYGEN [Concomitant]
  6. SPIRIVA [Concomitant]
  7. SINGULAIR [Concomitant]
  8. VENTOLIN                                /SCH/ [Concomitant]

REACTIONS (3)
  - Influenza [Recovered/Resolved]
  - Respiratory disorder [Recovered/Resolved]
  - Solar lentigo [Unknown]
